FAERS Safety Report 9680831 (Version 1)
Quarter: 2013Q4

REPORT INFORMATION
  Report Type: Report from Study
  Country: US (occurrence: US)
  Receive Date: 20131111
  Receipt Date: 20131111
  Transmission Date: 20140711
  Serious: Yes (Death)
  Sender: FDA-Public Use
  Company Number: PHEH2013US023444

PATIENT
  Age: 87 Year
  Sex: Male

DRUGS (1)
  1. TOBI [Suspect]
     Indication: BRONCHIECTASIS
     Dosage: 300MG/5ML, BID (ALTERNATING MONTHS)
     Dates: start: 20130905

REACTIONS (1)
  - Death [Fatal]
